FAERS Safety Report 18677869 (Version 2)
Quarter: 2021Q1

REPORT INFORMATION
  Report Type: Spontaneous
  Country: US (occurrence: US)
  Receive Date: 20201229
  Receipt Date: 20210112
  Transmission Date: 20210419
  Serious: No
  Sender: FDA-Public Use
  Company Number: US-PFIZER INC-2020511271

PATIENT
  Age: 71 Year
  Sex: Male
  Weight: 92.99 kg

DRUGS (1)
  1. RELPAX [Suspect]
     Active Substance: ELETRIPTAN HYDROBROMIDE
     Indication: MIGRAINE
     Dosage: 40 MG, AS NEEDED(1 TABLET BY MOUTH DAILY AS NEEDED )
     Route: 048
     Dates: start: 20201223

REACTIONS (2)
  - Drug ineffective [Not Recovered/Not Resolved]
  - Product dispensing issue [Not Recovered/Not Resolved]
